FAERS Safety Report 5334376-8 (Version None)
Quarter: 2007Q2

REPORT INFORMATION
  Report Type: 
  Country: None (occurrence: None)
  Receive Date: 20070525
  Receipt Date: 20070518
  Transmission Date: 20071010
  Serious: Yes (Other)
  Sender: FDA-Public Use
  Company Number: PHEH1995US05169

PATIENT
  Age: 65 Year
  Sex: Female

DRUGS (1)
  1. ESTRADERM [Suspect]
     Indication: HORMONE REPLACEMENT THERAPY
     Dosage: 0.05 MG/DAY, TWICE WEEKLY
     Route: 062
     Dates: start: 19910601

REACTIONS (4)
  - DRUG INEFFECTIVE [None]
  - DRY SKIN [None]
  - HOT FLUSH [None]
  - LUNG NEOPLASM MALIGNANT [None]
